FAERS Safety Report 5172223-8 (Version None)
Quarter: 2006Q4

REPORT INFORMATION
  Report Type: 
  Country: None (occurrence: None)
  Receive Date: 20061205
  Receipt Date: 20061120
  Transmission Date: 20070319
  Serious: Yes (Other)
  Sender: FDA-Public Use
  Company Number: 2006111280

PATIENT
  Age: 69 Year
  Sex: Female
  Weight: 81.6475 kg

DRUGS (6)
  1. GEODON [Suspect]
     Indication: SCHIZOAFFECTIVE DISORDER
     Dosage: 120 MG (2 IN 1 D)
     Dates: start: 20060329, end: 20060427
  2. ZOLOFT [Suspect]
     Dosage: 100 MG (100 MG, 1 IN 1 D)
     Dates: start: 20060308
  3. ZYPREXA [Concomitant]
     Dosage: 10 MG (10 MG, 1 IN 1 D)
     Dates: start: 20050301, end: 20060101
  4. TRILEPTAL [Concomitant]
  5. LEXAPRO [Concomitant]
  6. EFFEXOR XR [Concomitant]

REACTIONS (4)
  - CONDITION AGGRAVATED [None]
  - RASH [None]
  - STEVENS-JOHNSON SYNDROME [None]
  - URTICARIA [None]
